FAERS Safety Report 7034433-4 (Version None)
Quarter: 2010Q4

REPORT INFORMATION
  Report Type: 
  Country: None (occurrence: None)
  Receive Date: 20101008
  Receipt Date: 20100928
  Transmission Date: 20110411
  Serious: Yes (Hospitalization)
  Sender: FDA-Public Use
  Company Number: PHHY2010FR65349

PATIENT
  Sex: Male

DRUGS (10)
  1. LESCOL [Interacting]
     Dosage: 20 MG, QD
     Route: 048
     Dates: end: 20100528
  2. COLCHIMAX [Interacting]
     Dosage: 1 DF, QD
     Route: 048
     Dates: start: 20100426, end: 20100528
  3. ZYLORIC [Suspect]
     Dosage: 300 MG, QD
     Dates: start: 20100519, end: 20100528
  4. EZETROL [Suspect]
     Dosage: 10 MG, QD
     Dates: end: 20100528
  5. CARDENSIEL [Concomitant]
     Dosage: 7.5 MG, QD
  6. PERINDOPRIL ERBUMINE [Concomitant]
     Dosage: 10 MG, QD
  7. LASIX [Concomitant]
     Dosage: 20 MG, QD
  8. KARDEGIC [Concomitant]
     Dosage: 75 MG, QD
  9. PREVISCAN [Concomitant]
     Dosage: 0.5 TABLET QD
     Route: 048
  10. LEVOTHYROXINE SODIUM [Concomitant]
     Dosage: 25 UG, QD

REACTIONS (26)
  - ALANINE AMINOTRANSFERASE INCREASED [None]
  - AREFLEXIA [None]
  - ASPARTATE AMINOTRANSFERASE INCREASED [None]
  - BLOOD CREATINE PHOSPHOKINASE INCREASED [None]
  - BLOOD PRESSURE DECREASED [None]
  - CARDIAC FAILURE [None]
  - CONCOMITANT DISEASE PROGRESSION [None]
  - DRUG INTERACTION [None]
  - EYELID OEDEMA [None]
  - GAMMA-GLUTAMYLTRANSFERASE INCREASED [None]
  - GOUT [None]
  - HEART RATE DECREASED [None]
  - HEPATOJUGULAR REFLUX [None]
  - HEPATOMEGALY [None]
  - INTERNATIONAL NORMALISED RATIO INCREASED [None]
  - LIVIDITY [None]
  - LYMPHADENOPATHY [None]
  - MONARTHRITIS [None]
  - MUSCULAR WEAKNESS [None]
  - MYALGIA [None]
  - OEDEMA PERIPHERAL [None]
  - PALMAR ERYTHEMA [None]
  - PURPURA [None]
  - RHABDOMYOLYSIS [None]
  - SKIN LESION [None]
  - TOXIC SKIN ERUPTION [None]
